FAERS Safety Report 11672605 (Version 1)
Quarter: 2015Q4

REPORT INFORMATION
  Report Type: Spontaneous
  Country: US (occurrence: US)
  Receive Date: 20151028
  Receipt Date: 20151028
  Transmission Date: 20160304
  Serious: No
  Sender: FDA-Public Use
  Company Number: US-ASTRAZENECA-2015SF00882

PATIENT
  Age: 623 Month
  Sex: Male
  Weight: 102.1 kg

DRUGS (5)
  1. MOVANTIK [Suspect]
     Active Substance: NALOXEGOL OXALATE
     Indication: PAIN
     Route: 048
     Dates: start: 201510
  2. DULCOLAX NOS [Concomitant]
     Active Substance: BISACODYL OR DOCUSATE SODIUM
  3. FENTANYL. [Concomitant]
     Active Substance: FENTANYL
     Indication: PAIN
     Route: 048
     Dates: start: 2013
  4. PERCOCET [Concomitant]
     Active Substance: ACETAMINOPHEN\OXYCODONE HYDROCHLORIDE
     Indication: BREAKTHROUGH PAIN
     Dosage: 10/35MG, AS REQUIRED
     Route: 048
     Dates: start: 2009
  5. MOVANTIK [Suspect]
     Active Substance: NALOXEGOL OXALATE
     Indication: PAIN
     Route: 048

REACTIONS (8)
  - Flatulence [Unknown]
  - Intentional product misuse [Unknown]
  - Drug ineffective [Unknown]
  - Feeling abnormal [Unknown]
  - Adverse event [Unknown]
  - Abdominal pain [Unknown]
  - Drug dose omission [Unknown]
  - Diarrhoea [None]

NARRATIVE: CASE EVENT DATE: 201510
